FAERS Safety Report 18180938 (Version 1)
Quarter: 2020Q3

REPORT INFORMATION
  Report Type: Spontaneous
  Country: US (occurrence: US)
  Receive Date: 20200821
  Receipt Date: 20200821
  Transmission Date: 20201103
  Serious: Yes (Other)
  Sender: FDA-Public Use
  Company Number: None

PATIENT
  Age: 53 Year
  Sex: Male
  Weight: 87.9 kg

DRUGS (10)
  1. CHOLECALCIFEROL [Concomitant]
     Active Substance: CHOLECALCIFEROL
     Dates: start: 20200809, end: 20200815
  2. HUMALOG [Concomitant]
     Active Substance: INSULIN LISPRO
     Dates: start: 20200809
  3. IVERMECTIN. [Concomitant]
     Active Substance: IVERMECTIN
     Dates: start: 20200809, end: 20200809
  4. REMDESIVIR. [Suspect]
     Active Substance: REMDESIVIR
     Indication: COVID-19
     Route: 040
     Dates: start: 20200810, end: 20200813
  5. ASCORBIC ACID. [Concomitant]
     Active Substance: ASCORBIC ACID
     Dates: start: 20200809, end: 20200815
  6. DEXAMETHASONE. [Concomitant]
     Active Substance: DEXAMETHASONE
     Dates: start: 20200809, end: 20200815
  7. ENOXAPARIN [Concomitant]
     Active Substance: ENOXAPARIN
     Dates: start: 20200809, end: 20200815
  8. AZITHROMYCIN ANHYDROUS. [Concomitant]
     Active Substance: AZITHROMYCIN ANHYDROUS
     Dates: start: 20200809, end: 20200813
  9. LANTUS [Concomitant]
     Active Substance: INSULIN GLARGINE
     Dates: start: 20200812
  10. ZINC SULFATE. [Concomitant]
     Active Substance: ZINC SULFATE
     Dates: start: 20200809, end: 20200815

REACTIONS (3)
  - Alanine aminotransferase increased [None]
  - Aspartate aminotransferase increased [None]
  - Therapy interrupted [None]

NARRATIVE: CASE EVENT DATE: 20200813
